FAERS Safety Report 19586194 (Version 1)
Quarter: 2021Q3

REPORT INFORMATION
  Report Type: Spontaneous
  Country: US (occurrence: US)
  Receive Date: 20210721
  Receipt Date: 20210721
  Transmission Date: 20211014
  Serious: No
  Sender: FDA-Public Use
  Company Number: US-INSUD PHARMA-2107US00773

PATIENT

DRUGS (1)
  1. FOSFOMYCIN [Suspect]
     Active Substance: FOSFOMYCIN
     Indication: INFECTION PROPHYLAXIS
     Dosage: TWICE A WEEK
     Route: 048

REACTIONS (2)
  - Off label use [Unknown]
  - Retching [Not Recovered/Not Resolved]
